FAERS Safety Report 22313512 (Version 5)
Quarter: 2023Q4

REPORT INFORMATION
  Report Type: Report from Study
  Country: IT (occurrence: IT)
  Receive Date: 20230512
  Receipt Date: 20231103
  Transmission Date: 20240110
  Serious: Yes (Death, Life-Threatening, Hospitalization, Other)
  Sender: FDA-Public Use
  Company Number: IT-CELLTRION INC.-2023IT009642

PATIENT

DRUGS (11)
  1. BEVACIZUMAB [Suspect]
     Active Substance: BEVACIZUMAB
     Indication: Hepatocellular carcinoma
     Dosage: 900 MG
     Route: 042
     Dates: start: 20230404
  2. ATEZOLIZUMAB [Suspect]
     Active Substance: ATEZOLIZUMAB
     Indication: Hepatocellular carcinoma
     Dosage: 1200MG, EVERY 3 WEEKS (ON 04/APR/2023, HE RECEIVED LAST DOSE OF 1200 MG OF ATEZOLIZUMAB PRIOR TO AE/
     Route: 042
     Dates: start: 20230404
  3. PANTOPRAZOLE [Concomitant]
     Active Substance: PANTOPRAZOLE
     Dosage: UNK, 1 DAY
  4. FUROSEMIDE [Concomitant]
     Active Substance: FUROSEMIDE
     Dosage: UNK, 1 DAY
     Dates: start: 20230428
  5. AMLODIPINE [Concomitant]
     Active Substance: AMLODIPINE BESYLATE
     Dosage: UNK, EVERY 1 DAY
  6. LACTULOSE [Concomitant]
     Active Substance: LACTULOSE
     Dosage: UNK, 0.5 DAY
  7. RAMIPRIL [Concomitant]
     Active Substance: RAMIPRIL
     Dosage: UNK, 1 DAY
  8. ACETAMINOPHEN [Concomitant]
     Active Substance: ACETAMINOPHEN
     Dosage: UNK
     Dates: start: 20230420
  9. ACETAMINOPHEN [Concomitant]
     Active Substance: ACETAMINOPHEN
     Dosage: UNK, 0.33 DAY
     Dates: start: 20230420
  10. CANRENONE [Concomitant]
     Active Substance: CANRENONE
     Dosage: UNK, 1 DAY
     Dates: start: 20230420
  11. POLYETHYLENE GLYCOLS [Concomitant]
     Active Substance: POLYETHYLENE GLYCOLS
     Dosage: UNK
     Dates: start: 20230420

REACTIONS (5)
  - Death [Fatal]
  - Abdominal abscess [Recovered/Resolved with Sequelae]
  - Cholangitis infective [Recovering/Resolving]
  - Breakthrough pain [Not Recovered/Not Resolved]
  - Intentional product use issue [Unknown]

NARRATIVE: CASE EVENT DATE: 20230413
